FAERS Safety Report 6998827-5 (Version None)
Quarter: 2010Q3

REPORT INFORMATION
  Report Type: 
  Country: None (occurrence: None)
  Receive Date: 20100920
  Receipt Date: 20100517
  Transmission Date: 20110219
  Serious: Yes (Disabling)
  Sender: FDA-Public Use
  Company Number: US-ASTRAZENECA-2007UW08987

PATIENT

DRUGS (6)
  1. SEROQUEL [Suspect]
     Route: 048
     Dates: start: 20030918
  2. AUGMENTIN ES-600 [Concomitant]
     Dates: start: 20021028
  3. AMITRIPTYLINE HCL [Concomitant]
     Dates: start: 20021028
  4. RISPERDAL [Concomitant]
     Dates: start: 20021107
  5. METHYLPHENIDATE [Concomitant]
     Dosage: 5 TO 10
     Dates: start: 20021107
  6. CONCERTA [Concomitant]
     Dates: start: 20030815

REACTIONS (1)
  - DIABETES MELLITUS [None]
